FAERS Safety Report 9714050 (Version 1)
Quarter: 2013Q4

REPORT INFORMATION
  Report Type: Spontaneous
  Country: US (occurrence: US)
  Receive Date: 20131126
  Receipt Date: 20131126
  Transmission Date: 20140711
  Serious: No
  Sender: FDA-Public Use
  Company Number: US-GILEAD-2008-0018708

PATIENT
  Sex: Male
  Weight: 92.08 kg

DRUGS (17)
  1. LETAIRIS [Suspect]
     Indication: COR PULMONALE CHRONIC
     Route: 048
  2. SPIRONOLACTONE [Concomitant]
     Route: 048
  3. SINGULAIR [Concomitant]
     Route: 048
  4. ZOCOR [Concomitant]
     Route: 048
  5. MUCOMYST [Concomitant]
     Route: 055
  6. LASIX [Concomitant]
     Route: 048
  7. COUMADIN [Concomitant]
     Route: 048
  8. REVATIO [Concomitant]
     Route: 048
  9. FORADIL AEROLIZER [Concomitant]
     Route: 055
  10. AMIORADONE [Concomitant]
  11. MAG-OX [Concomitant]
     Route: 048
  12. PULMICORT [Concomitant]
     Route: 055
  13. SEROQUEL [Concomitant]
     Route: 048
  14. FOLTX [Concomitant]
     Route: 048
  15. SPIRIVA [Concomitant]
     Route: 055
  16. XOPENEX HFA [Concomitant]
     Route: 055
  17. VERAPAMIL [Concomitant]
     Route: 048

REACTIONS (1)
  - Constipation [Unknown]
